FAERS Safety Report 7276080-5 (Version None)
Quarter: 2011Q1

REPORT INFORMATION
  Report Type: 
  Country: None (occurrence: None)
  Receive Date: 20110204
  Receipt Date: 20100419
  Transmission Date: 20110831
  Serious: Yes (Hospitalization)
  Sender: FDA-Public Use
  Company Number: FR-JNJFOC-20110201116

PATIENT
  Age: 53 Year
  Sex: Male

DRUGS (3)
  1. REMICADE [Suspect]
     Route: 042
  2. REMICADE [Suspect]
     Indication: PSORIASIS
     Route: 042
  3. REMICADE [Suspect]
     Route: 042

REACTIONS (1)
  - LUNG DISORDER [None]
